FAERS Safety Report 10215971 (Version 2)
Quarter: 2014Q3

REPORT INFORMATION
  Report Type: Spontaneous
  Country: US (occurrence: None)
  Receive Date: 20140602
  Receipt Date: 20140807
  Transmission Date: 20150326
  Serious: Yes (Other)
  Sender: FDA-Public Use
  Company Number: 2014-US-006593

PATIENT
  Age: 27 Year
  Sex: Female
  Weight: 76.2 kg

DRUGS (1)
  1. XYREM [Suspect]
     Active Substance: SODIUM OXYBATE
     Indication: NARCOLEPSY
     Route: 048
     Dates: start: 20140315, end: 2014

REACTIONS (8)
  - Constipation [None]
  - Sinus headache [None]
  - Weight decreased [None]
  - Cardiac ablation [None]
  - Oropharyngeal pain [None]
  - Therapeutic response decreased [None]
  - Tachycardia [None]
  - Impaired gastric emptying [None]

NARRATIVE: CASE EVENT DATE: 201405
